FAERS Safety Report 8302540-1 (Version None)
Quarter: 2012Q2

REPORT INFORMATION
  Report Type: 
  Country: None (occurrence: None)
  Receive Date: 20120411
  Receipt Date: 20120328
  Transmission Date: 20120825
  Serious: Yes (Hospitalization)
  Sender: FDA-Public Use
  Company Number: 2012030852

PATIENT
  Age: 41 Year
  Sex: Male

DRUGS (18)
  1. PRIVIGEN [Suspect]
  2. ACUPAN (NEFOPAM HYDROCHLORID) [Concomitant]
  3. PHOSPHONEUROS (PHOSPHONEUROS) [Concomitant]
  4. PROGRAF [Concomitant]
  5. PRIVIGEN [Suspect]
  6. PRIVIGEN [Suspect]
  7. PRIVIGEN [Suspect]
  8. POLARAMINE [Concomitant]
  9. AMLODIPINE BESYLATE [Concomitant]
  10. ROCEPHIN [Concomitant]
  11. SIMULECT [Concomitant]
  12. OMEPRAZOLE [Concomitant]
  13. CELLCEPT [Concomitant]
  14. PRIVIGEN [Suspect]
     Indication: PROPHYLAXIS AGAINST TRANSPLANT REJECTION
     Dosage: 50 G
     Route: 042
     Dates: start: 20111217, end: 20111218
  15. PRIVIGEN [Suspect]
     Indication: PROPHYLAXIS AGAINST TRANSPLANT REJECTION
     Dosage: 50 G
     Route: 042
     Dates: start: 20120110
  16. PRIVIGEN [Suspect]
     Indication: PROPHYLAXIS AGAINST TRANSPLANT REJECTION
     Dosage: 50 G
     Route: 042
     Dates: start: 20120111
  17. BACTRIM [Concomitant]
  18. PREDNISOLONE [Concomitant]

REACTIONS (2)
  - HAEMOLYTIC ANAEMIA [None]
  - OFF LABEL USE [None]
